FAERS Safety Report 7805172-4 (Version None)
Quarter: 2011Q4

REPORT INFORMATION
  Report Type: 
  Country: None (occurrence: None)
  Receive Date: 20111010
  Receipt Date: 20110930
  Transmission Date: 20120403
  Serious: Yes (Death, Other)
  Sender: FDA-Public Use
  Company Number: PHHY2011BR87851

PATIENT
  Sex: Male

DRUGS (2)
  1. VALSARTAN [Concomitant]
     Route: 048
  2. CAPTOPRIL [Suspect]
     Route: 048

REACTIONS (2)
  - HYPERTENSION [None]
  - PNEUMONIA [None]
